FAERS Safety Report 4367531-4 (Version None)
Quarter: 2004Q2

REPORT INFORMATION
  Report Type: 
  Country: None (occurrence: None)
  Receive Date: 20040601
  Receipt Date: 20040524
  Transmission Date: 20050107
  Serious: Yes (Other)
  Sender: FDA-Public Use
  Company Number: FR-ROCHE-368583

PATIENT
  Age: 50 Year
  Sex: Female

DRUGS (3)
  1. VALIUM [Suspect]
     Indication: DRUG USE FOR UNKNOWN INDICATION
     Route: 048
  2. VALIUM [Suspect]
     Route: 048
  3. IXEL [Concomitant]

REACTIONS (2)
  - ANTEROGRADE AMNESIA [None]
  - OVERDOSE [None]
